FAERS Safety Report 25995788 (Version 1)
Quarter: 2025Q4

REPORT INFORMATION
  Report Type: Spontaneous
  Country: US (occurrence: None)
  Receive Date: 20251104
  Receipt Date: 20251104
  Transmission Date: 20260118
  Serious: Yes (Other)
  Sender: FDA-CTU
  Company Number: None

PATIENT
  Age: 70 Year
  Sex: Female
  Weight: 114.75 kg

DRUGS (15)
  1. JARDIANCE [Suspect]
     Active Substance: EMPAGLIFLOZIN
     Indication: Diabetes mellitus
     Dosage: OTHER QUANTITY : 1 TABLET(S);?
     Route: 048
     Dates: start: 20251029, end: 20251029
  2. JARDIANCE [Suspect]
     Active Substance: EMPAGLIFLOZIN
     Indication: Chronic kidney disease
  3. JARDIANCE [Suspect]
     Active Substance: EMPAGLIFLOZIN
     Indication: Coronary artery disease
  4. LISINOPRIL [Concomitant]
     Active Substance: LISINOPRIL
  5. FUROSEMIDE [Concomitant]
     Active Substance: FUROSEMIDE
  6. Artia XT/Dilitiazem [Concomitant]
  7. ATORVASTATIN [Concomitant]
     Active Substance: ATORVASTATIN
  8. FAMOTIDINE [Concomitant]
     Active Substance: FAMOTIDINE
  9. MOUNJARO [Concomitant]
     Active Substance: TIRZEPATIDE
  10. Freestyle Libre [Concomitant]
  11. MELOXICAM [Concomitant]
     Active Substance: MELOXICAM
  12. CLINDAMYCIN [Concomitant]
     Active Substance: CLINDAMYCIN
  13. Loratadine (Claritan) [Concomitant]
  14. Azo Cranberry Supplement [Concomitant]
  15. TYLENOL [Concomitant]
     Active Substance: ACETAMINOPHEN

REACTIONS (7)
  - Abdominal pain upper [None]
  - Nausea [None]
  - Vomiting [None]
  - Diarrhoea [None]
  - Constipation [None]
  - Drug hypersensitivity [None]
  - Drug intolerance [None]

NARRATIVE: CASE EVENT DATE: 20251029
